FAERS Safety Report 12845707 (Version 1)
Quarter: 2016Q4

REPORT INFORMATION
  Report Type: Spontaneous
  Country: US (occurrence: US)
  Receive Date: 20161013
  Receipt Date: 20161013
  Transmission Date: 20170207
  Serious: No
  Sender: FDA-Public Use
  Company Number: US-ELI_LILLY_AND_COMPANY-US201610002687

PATIENT
  Age: 6 Year
  Sex: Male

DRUGS (2)
  1. HUMALOG [Suspect]
     Active Substance: INSULIN LISPRO
     Indication: TYPE 1 DIABETES MELLITUS
     Dosage: 0.5 U, EACH 20 CARBS
     Route: 065
     Dates: start: 201607
  2. HUMALOG [Suspect]
     Active Substance: INSULIN LISPRO
     Dosage: 0.5 U, EACH 20 CARBS
     Route: 065
     Dates: start: 20161005

REACTIONS (1)
  - Blood glucose increased [Recovered/Resolved]

NARRATIVE: CASE EVENT DATE: 20161001
